FAERS Safety Report 6469821-8 (Version None)
Quarter: 2009Q4

REPORT INFORMATION
  Report Type: 
  Country: None (occurrence: None)
  Receive Date: 20091203
  Receipt Date: 20080501
  Transmission Date: 20100525
  Serious: Yes (Hospitalization, Other)
  Sender: FDA-Public Use
  Company Number: US-ELI_LILLY_AND_COMPANY-US200712003112

PATIENT
  Sex: Male

DRUGS (9)
  1. HUMULIN 70/30 [Suspect]
     Dosage: 60 U, EACH MORNING
  2. HUMULIN 70/30 [Suspect]
     Dosage: 50 U, EACH EVENING
  3. HUMALOG [Suspect]
  4. ACTOS [Concomitant]
     Indication: DIABETES MELLITUS
     Dosage: UNK, DAILY (1/D)
  5. GLUCOPHAGE [Concomitant]
  6. LIPITOR [Concomitant]
  7. COZAAR [Concomitant]
  8. MINOCYCLINE HCL [Concomitant]
  9. ATENOLOL [Concomitant]

REACTIONS (8)
  - BLOOD GLUCOSE INCREASED [None]
  - CATHETERISATION CARDIAC [None]
  - CHEST PAIN [None]
  - FALL [None]
  - HERPES ZOSTER [None]
  - JOINT DISLOCATION [None]
  - STENT PLACEMENT [None]
  - WEIGHT DECREASED [None]
